FAERS Safety Report 5038925-9 (Version None)
Quarter: 2006Q2

REPORT INFORMATION
  Report Type: 
  Country: None (occurrence: None)
  Receive Date: 20060627
  Receipt Date: 20060627
  Transmission Date: 20061013
  Serious: Yes (Hospitalization)
  Sender: FDA-Public Use
  Company Number: None

PATIENT
  Sex: Male
  Weight: 88.6 kg

DRUGS (3)
  1. OXALIPLATIN [Suspect]
     Indication: LUNG NEOPLASM MALIGNANT
     Dosage: 85 MG /M2 IV D1 AND 15
     Route: 042
     Dates: start: 20060203
  2. DOCETAXEL [Suspect]
     Indication: LUNG NEOPLASM MALIGNANT
     Dosage: 30 MG/M2 IV D1 AND  8
     Route: 042
     Dates: start: 20060203
  3. LOVENOX [Concomitant]

REACTIONS (3)
  - CONCUSSION [None]
  - FALL [None]
  - HEAD INJURY [None]
